FAERS Safety Report 17709668 (Version 2)
Quarter: 2020Q2

REPORT INFORMATION
  Report Type: Spontaneous
  Country: US (occurrence: US)
  Receive Date: 20200427
  Receipt Date: 20200501
  Transmission Date: 20200714
  Serious: No
  Sender: FDA-Public Use
  Company Number: US-TEVA-2020-US-1226219

PATIENT
  Sex: Female

DRUGS (2)
  1. BUPROPION HYDROCHLORIDE. [Suspect]
     Active Substance: BUPROPION HYDROCHLORIDE
     Indication: ANXIETY
  2. BUPROPION HYDROCHLORIDE. [Suspect]
     Active Substance: BUPROPION HYDROCHLORIDE
     Indication: DEPRESSION
     Route: 065

REACTIONS (3)
  - Drug ineffective [Unknown]
  - Product taste abnormal [Unknown]
  - Product odour abnormal [Unknown]

NARRATIVE: CASE EVENT DATE: 20200409
